FAERS Safety Report 5351421-4 (Version None)
Quarter: 2007Q2

REPORT INFORMATION
  Report Type: 
  Country: None (occurrence: None)
  Receive Date: 20070521
  Receipt Date: 20070403
  Transmission Date: 20071010
  Serious: No
  Sender: FDA-Public Use
  Company Number: WAES 0704USA00570

PATIENT
  Age: 63 Year
  Sex: Female
  Weight: 117.4816 kg

DRUGS (1)
  1. JANUVIA [Suspect]
     Indication: DIABETES MELLITUS NON-INSULIN-DEPENDENT
     Dosage: 100 MG/DAILY/PO
     Route: 048
     Dates: start: 20061031, end: 20061214

REACTIONS (2)
  - SKIN ULCER [None]
  - TONGUE ERUPTION [None]
